FAERS Safety Report 7126560-8 (Version None)
Quarter: 2010Q4

REPORT INFORMATION
  Report Type: 
  Country: None (occurrence: None)
  Receive Date: 20101129
  Receipt Date: 20101123
  Transmission Date: 20110411
  Serious: Yes (Other)
  Sender: FDA-Public Use
  Company Number: BR-PFIZER INC-2010146990

PATIENT
  Age: 32 Year
  Sex: Male
  Weight: 95 kg

DRUGS (5)
  1. CHAMPIX [Suspect]
     Indication: SMOKING CESSATION THERAPY
     Dosage: 0.5 MG, 1X/DAY
     Route: 048
     Dates: start: 20101103
  2. TOPIRAMATE [Concomitant]
     Indication: EPILEPSY
     Dosage: 100 MG, 1X/DAY, 1 TABLET
     Dates: start: 20100601
  3. TOPIRAMATE [Concomitant]
     Indication: HEADACHE
  4. FLUOXETINE HYDROCHLORIDE [Concomitant]
     Indication: DEPRESSION
     Dosage: UNK
     Dates: start: 20100901
  5. RIVOTRIL [Concomitant]
     Dosage: UNK

REACTIONS (1)
  - HYPERTENSION [None]
